FAERS Safety Report 9911699 (Version 2)
Quarter: 2014Q1

REPORT INFORMATION
  Report Type: Report from Study
  Country: US (occurrence: US)
  Receive Date: 20140219
  Receipt Date: 20140219
  Transmission Date: 20141002
  Serious: Yes (Hospitalization, Other)
  Sender: FDA-Public Use
  Company Number: US-ABBVIE-13P-163-1053313-00

PATIENT
  Age: 51 Year
  Sex: Female
  Weight: 60.84 kg

DRUGS (1)
  1. HUMIRA [Suspect]
     Indication: CROHN^S DISEASE
     Route: 058
     Dates: start: 2009

REACTIONS (3)
  - Intestinal obstruction [Unknown]
  - Crohn^s disease [Recovered/Resolved]
  - Abdominal pain [Recovered/Resolved]
